FAERS Safety Report 24698787 (Version 1)
Quarter: 2024Q4

REPORT INFORMATION
  Report Type: Spontaneous
  Country: US (occurrence: US)
  Receive Date: 20241205
  Receipt Date: 20241205
  Transmission Date: 20250115
  Serious: No
  Sender: Harrow Health
  Company Number: US-IMP-2024001061

PATIENT
  Sex: Female

DRUGS (1)
  1. VEVYE [Suspect]
     Active Substance: CYCLOSPORINE
     Indication: Product used for unknown indication
     Dosage: DECREASE THE DOSE TO ONE DROP AT NIGHT DAILY
     Route: 047

REACTIONS (2)
  - Instillation site irritation [Unknown]
  - Intentional product use issue [Unknown]
